FAERS Safety Report 22635339 (Version 1)
Quarter: 2023Q2

REPORT INFORMATION
  Report Type: Spontaneous
  Country: US (occurrence: US)
  Receive Date: 20230623
  Receipt Date: 20230623
  Transmission Date: 20230722
  Serious: Yes (Hospitalization)
  Sender: FDA-Public Use
  Company Number: US-009507513-2306USA010165

PATIENT
  Age: 85 Year
  Sex: Female

DRUGS (2)
  1. KEYTRUDA [Suspect]
     Active Substance: PEMBROLIZUMAB
     Indication: Endometrial adenocarcinoma
     Dosage: UNK
  2. LENVATINIB MESYLATE [Interacting]
     Active Substance: LENVATINIB MESYLATE
     Indication: Endometrial adenocarcinoma
     Dosage: 8 MILLIGRAM, QD
     Route: 048
     Dates: start: 20230227, end: 20230508

REACTIONS (2)
  - Dysarthria [Unknown]
  - Tremor [Unknown]

NARRATIVE: CASE EVENT DATE: 20230508
